FAERS Safety Report 8230522-7 (Version None)
Quarter: 2012Q1

REPORT INFORMATION
  Report Type: 
  Country: None (occurrence: None)
  Receive Date: 20120322
  Receipt Date: 20120322
  Transmission Date: 20120608
  Serious: No
  Sender: FDA-Public Use
  Company Number: None

PATIENT
  Sex: Male

DRUGS (1)
  1. LOVENOX [Suspect]
     Indication: MENISCUS LESION
     Dosage: INJECTABLE SUBCUTANEOUS 120 MG BID PRESCRIBE
     Route: 058

REACTIONS (2)
  - EFFUSION [None]
  - MEDICATION ERROR [None]
